FAERS Safety Report 17198321 (Version 1)
Quarter: 2019Q4

REPORT INFORMATION
  Report Type: Report from Study
  Country: US (occurrence: US)
  Receive Date: 20191225
  Receipt Date: 20191225
  Transmission Date: 20200122
  Serious: Yes (Other)
  Sender: FDA-Public Use
  Company Number: US-ROCHE-2484412

PATIENT
  Sex: Male
  Weight: 71.28 kg

DRUGS (1)
  1. RITUXAN [Suspect]
     Active Substance: RITUXIMAB
     Indication: NEUROMYELITIS OPTICA SPECTRUM DISORDER
     Dosage: VIAL
     Route: 042
     Dates: start: 20100407

REACTIONS (4)
  - Off label use [Unknown]
  - Amnesia [Unknown]
  - Intentional product use issue [Unknown]
  - Seizure [Unknown]
